FAERS Safety Report 7233440-6 (Version None)
Quarter: 2011Q1

REPORT INFORMATION
  Report Type: 
  Country: None (occurrence: None)
  Receive Date: 20110107
  Receipt Date: 20101229
  Transmission Date: 20110831
  Serious: Yes (Hospitalization, Other)
  Sender: FDA-Public Use
  Company Number: 2010US004827

PATIENT
  Age: 44 Year
  Sex: Female
  Weight: 131 kg

DRUGS (2)
  1. PROGRAF [Suspect]
     Indication: RENAL TRANSPLANT
     Dosage: 5 MG, BID, ORAL
     Route: 048
  2. CELLCEPT [Concomitant]

REACTIONS (28)
  - PERIPHERAL VASCULAR DISORDER [None]
  - SLEEP APNOEA SYNDROME [None]
  - HYPERTENSION [None]
  - LOCALISED INFECTION [None]
  - BUNDLE BRANCH BLOCK LEFT [None]
  - DIABETES MELLITUS [None]
  - RENAL FAILURE ACUTE [None]
  - BLINDNESS [None]
  - HYPOTHYROIDISM [None]
  - TOE AMPUTATION [None]
  - HEADACHE [None]
  - HAEMATOCRIT DECREASED [None]
  - CARDIAC FAILURE CONGESTIVE [None]
  - DYSLIPIDAEMIA [None]
  - SKIN ULCER [None]
  - CORONARY ARTERY DISEASE [None]
  - HYPOVOLAEMIA [None]
  - INFLAMMATION [None]
  - CARDIOMYOPATHY [None]
  - GANGRENE [None]
  - INSOMNIA [None]
  - HAEMOGLOBIN DECREASED [None]
  - FOOT AMPUTATION [None]
  - LEG AMPUTATION [None]
  - OSTEOMYELITIS CHRONIC [None]
  - GASTROOESOPHAGEAL REFLUX DISEASE [None]
  - DIARRHOEA [None]
  - SKIN NECROSIS [None]
